FAERS Safety Report 4729897-2 (Version None)
Quarter: 2005Q3

REPORT INFORMATION
  Report Type: 
  Country: None (occurrence: None)
  Receive Date: 20050728
  Receipt Date: 20050722
  Transmission Date: 20060218
  Serious: Yes (Disabling, Other)
  Sender: FDA-Public Use
  Company Number: 200511188BWH

PATIENT
  Age: 59 Year
  Sex: Male

DRUGS (3)
  1. AVELOX [Suspect]
     Indication: FEBRILE NEUTROPENIA
     Dosage: INTRAVENOUS
     Route: 042
  2. BETA-LACTAM [Concomitant]
  3. CISPLATIN [Concomitant]

REACTIONS (2)
  - DIALYSIS [None]
  - NEPHRITIS INTERSTITIAL [None]
